FAERS Safety Report 11867537 (Version 1)
Quarter: 2015Q4

REPORT INFORMATION
  Report Type: Spontaneous
  Country: US (occurrence: US)
  Receive Date: 20151224
  Receipt Date: 20151224
  Transmission Date: 20160305
  Serious: No
  Sender: FDA-Public Use
  Company Number: US-GLAXOSMITHKLINE-US2015179347

PATIENT
  Sex: Female

DRUGS (6)
  1. SEREVENT DISKUS [Suspect]
     Active Substance: SALMETEROL XINAFOATE
     Indication: ASTHMA
     Dosage: 1 PUFF(S), BID
     Route: 055
  2. SINGULAIR [Concomitant]
     Active Substance: MONTELUKAST SODIUM
  3. SUDAFED [Concomitant]
     Active Substance: PSEUDOEPHEDRINE HYDROCHLORIDE
  4. ADVAIR DISKUS [Suspect]
     Active Substance: FLUTICASONE PROPIONATE\SALMETEROL XINAFOATE
     Dosage: 1 PUFF(S), BID
     Dates: start: 20151127, end: 20151209
  5. ADVAIR DISKUS [Suspect]
     Active Substance: FLUTICASONE PROPIONATE\SALMETEROL XINAFOATE
     Indication: ASTHMA
     Dosage: UNK
     Route: 065
  6. CLARINEX [Concomitant]
     Active Substance: DESLORATADINE

REACTIONS (4)
  - Inappropriate schedule of drug administration [Unknown]
  - Drug ineffective [Unknown]
  - Nausea [Recovered/Resolved]
  - Abdominal pain upper [Recovered/Resolved]
